FAERS Safety Report 12724185 (Version 1)
Quarter: 2016Q3

REPORT INFORMATION
  Report Type: Spontaneous
  Country: US (occurrence: US)
  Receive Date: 20160906
  Receipt Date: 20160906
  Transmission Date: 20161109
  Serious: Yes (Other)
  Sender: FDA-Public Use
  Company Number: None

PATIENT
  Age: 26 Year
  Sex: Female
  Weight: 55.79 kg

DRUGS (3)
  1. DEPO-PROVERA [Suspect]
     Active Substance: MEDROXYPROGESTERONE ACETATE
     Indication: CONTRACEPTION
     Dosage: 150MG EVERY 12-13 WEEK DEEP IM
     Route: 030
     Dates: start: 20151123, end: 20160513
  2. HEPATITIS B VACCINE [Concomitant]
     Active Substance: HEPATITIS B VIRUS VACCINE
  3. MEASLES, MUMPS, RUBELLA VACCINE [Concomitant]

REACTIONS (3)
  - Pregnancy with injectable contraceptive [None]
  - Transplant failure [None]
  - Pregnancy test urine positive [None]

NARRATIVE: CASE EVENT DATE: 20160505
